FAERS Safety Report 11249765 (Version 1)
Quarter: 2015Q3

REPORT INFORMATION
  Report Type: Spontaneous
  Country: US (occurrence: US)
  Receive Date: 20150708
  Receipt Date: 20150708
  Transmission Date: 20151125
  Serious: Yes (Other)
  Sender: FDA-Public Use
  Company Number: US-ELI_LILLY_AND_COMPANY-US201003000103

PATIENT
  Age: 68 Year
  Sex: Female
  Weight: 69.84 kg

DRUGS (6)
  1. CARBO [Concomitant]
     Dosage: 320 MG, DAY 1
     Dates: start: 20100210
  2. GEMZAR [Suspect]
     Active Substance: GEMCITABINE HYDROCHLORIDE
     Indication: FALLOPIAN TUBE CANCER STAGE III
     Dosage: 1170 MG, DAYS 1 AND 8
     Route: 065
     Dates: start: 20100120
  3. GEMZAR [Suspect]
     Active Substance: GEMCITABINE HYDROCHLORIDE
     Dosage: 1335 MG, OTHER
     Route: 065
  4. CARBO [Concomitant]
     Indication: FALLOPIAN TUBE CANCER STAGE III
     Dosage: 426 MG, OTHER
     Route: 065
     Dates: start: 20100120
  5. NEULASTA [Concomitant]
     Active Substance: PEGFILGRASTIM
     Dosage: 6 MG, UNK
     Dates: start: 20100128
  6. PROCRIT [Concomitant]
     Active Substance: ERYTHROPOIETIN
     Dosage: 40000 U, UNK
     Dates: start: 20100218

REACTIONS (2)
  - Thrombocytopenia [Unknown]
  - Off label use [Not Recovered/Not Resolved]

NARRATIVE: CASE EVENT DATE: 20100120
